FAERS Safety Report 23720318 (Version 2)
Quarter: 2024Q2

REPORT INFORMATION
  Report Type: Spontaneous
  Country: GB (occurrence: GB)
  Receive Date: 20240408
  Receipt Date: 20240425
  Transmission Date: 20240716
  Serious: Yes (Hospitalization)
  Sender: FDA-Public Use
  Company Number: GB-MYLANLABS-2024M1030841

PATIENT
  Age: 63 Year
  Sex: Male
  Weight: 122.4 kg

DRUGS (10)
  1. CLOZARIL [Suspect]
     Active Substance: CLOZAPINE
     Indication: Schizophrenia
     Dosage: 800 MILLIGRAM
     Route: 048
     Dates: start: 20180621
  2. CLOZARIL [Suspect]
     Active Substance: CLOZAPINE
     Dosage: 750 MILLIGRAM
     Route: 048
     Dates: start: 20180621
  3. PIRENZEPINE [Concomitant]
     Active Substance: PIRENZEPINE
     Dosage: 25 MILLIGRAM, BID
     Route: 065
  4. VALPROIC ACID [Concomitant]
     Active Substance: VALPROIC ACID
     Dosage: 500 MILLIGRAM, BID
     Route: 065
  5. POLYETHYLENE GLYCOLS [Concomitant]
     Active Substance: POLYETHYLENE GLYCOLS
     Dosage: 1 DOSAGE FORM, BID (COMPOUND ORAL POWDER)
     Route: 048
  6. ATORVASTATIN [Concomitant]
     Active Substance: ATORVASTATIN
     Dosage: 80 MILLIGRAM, QD (NOCTE)
     Route: 065
  7. LACTULOSE [Concomitant]
     Active Substance: LACTULOSE
     Dosage: 10 MILLILITER, BID (3.1- 3.7G/5ML ORAL SOLUTION)
     Route: 048
  8. FUROSEMIDE [Concomitant]
     Active Substance: FUROSEMIDE
     Dosage: 20 MILLIGRAM, QD (OD)
     Route: 065
  9. GLICLAZIDE [Concomitant]
     Active Substance: GLICLAZIDE
     Dosage: 160 MILLIGRAM, BID
     Route: 065
  10. SENNA [Concomitant]
     Active Substance: SENNA LEAF\SENNOSIDES\SENNOSIDES A AND B
     Dosage: 15 MILLIGRAM, QD (NOCTE)
     Route: 065

REACTIONS (5)
  - Incontinence [Unknown]
  - Malaise [Unknown]
  - Confusional state [Unknown]
  - Vomiting [Unknown]
  - Dysphagia [Unknown]
